FAERS Safety Report 4522579-1 (Version None)
Quarter: 2004Q4

REPORT INFORMATION
  Report Type: 
  Country: None (occurrence: None)
  Receive Date: 20041207
  Receipt Date: 20041124
  Transmission Date: 20050328
  Serious: Yes (Death)
  Sender: FDA-Public Use
  Company Number: 2004099032

PATIENT
  Age: 73 Year
  Sex: Female

DRUGS (1)
  1. LIPITOR [Suspect]
     Indication: DYSLIPIDAEMIA
     Dosage: 10 MG (10 MG 1 IN 1 D) ORAL
     Route: 048
     Dates: start: 20021101, end: 20031116

REACTIONS (1)
  - MYOCARDIAL INFARCTION [None]
